FAERS Safety Report 8294690-3 (Version None)
Quarter: 2012Q2

REPORT INFORMATION
  Report Type: 
  Country: None (occurrence: None)
  Receive Date: 20120418
  Receipt Date: 20120411
  Transmission Date: 20120825
  Serious: Yes (Other)
  Sender: FDA-Public Use
  Company Number: US-CELGENEUS-163-20785-12041276

PATIENT
  Age: 84 Year
  Sex: Male

DRUGS (3)
  1. THALOMID [Suspect]
     Route: 048
     Dates: start: 20101201, end: 20110701
  2. DEXAMETHASONE [Concomitant]
     Route: 065
     Dates: start: 20101201, end: 20110701
  3. VELCADE [Concomitant]
     Route: 065
     Dates: start: 20101201, end: 20110701

REACTIONS (2)
  - CARDIOVASCULAR DISORDER [None]
  - RENAL IMPAIRMENT [None]
